FAERS Safety Report 13332149 (Version 1)
Quarter: 2017Q1

REPORT INFORMATION
  Report Type: Spontaneous
  Country: US (occurrence: US)
  Receive Date: 20170314
  Receipt Date: 20170314
  Transmission Date: 20170428
  Serious: Yes (Other)
  Sender: FDA-Public Use
  Company Number: US-ROCHE-1904732

PATIENT
  Sex: Male
  Weight: 63.56 kg

DRUGS (1)
  1. XELODA [Suspect]
     Active Substance: CAPECITABINE
     Indication: NEOPLASM MALIGNANT
     Dosage: 2 IN AM, AND 2 IN PM FOR 5 DAYS THEN SKIPS A WEEK
     Route: 048

REACTIONS (1)
  - Lung neoplasm malignant [Unknown]
